FAERS Safety Report 5642374-X (Version None)
Quarter: 2008Q1

REPORT INFORMATION
  Report Type: 
  Country: None (occurrence: None)
  Receive Date: 20080227
  Receipt Date: 20080227
  Transmission Date: 20080703
  Serious: Yes (Hospitalization)
  Sender: FDA-Public Use
  Company Number: None

PATIENT
  Sex: Male
  Weight: 78.4723 kg

DRUGS (5)
  1. COUMADIN [Suspect]
     Indication: ANTICOAGULANT THERAPY
     Dosage: 7.5MG PO 5 DAYS/WEEK 5 MG PO 2 DAYS/WEEK PRIOR TO ER VISIT
     Route: 048
  2. SYNTHROID [Concomitant]
  3. PLAVIX [Concomitant]
  4. IMDUR [Concomitant]
  5. NORVASC [Concomitant]

REACTIONS (1)
  - HOSPITALISATION [None]
